FAERS Safety Report 12759519 (Version 2)
Quarter: 2019Q1

REPORT INFORMATION
  Report Type: Report from Study
  Country: CN (occurrence: CN)
  Receive Date: 20160919
  Receipt Date: 20190213
  Transmission Date: 20190417
  Serious: Yes (Hospitalization)
  Sender: FDA-Public Use
  Company Number: CN-PFIZER INC-2016422978

PATIENT
  Age: 43 Year
  Sex: Female
  Weight: 67 kg

DRUGS (4)
  1. AROMASIN [Suspect]
     Active Substance: EXEMESTANE
     Indication: BREAST CANCER
     Dosage: 25 MG, 1X/DAY (DAILY, CYCLE)
     Route: 048
     Dates: start: 20150804, end: 20150804
  2. EPIDAZA [Suspect]
     Active Substance: TUCIDINOSTAT
     Indication: BREAST CANCER
     Dosage: 30 MG, 1X/DAY (CYCLE)
     Route: 048
     Dates: start: 20150805, end: 20150805
  3. AROMASIN [Suspect]
     Active Substance: EXEMESTANE
     Dosage: 25 MG, 1X/DAY (DAILY, CYCLE)
     Route: 048
     Dates: start: 20150808
  4. EPIDAZA [Suspect]
     Active Substance: TUCIDINOSTAT
     Dosage: 30 MG, 2X/WEEK (CYCLE)
     Route: 048
     Dates: start: 20150808

REACTIONS (2)
  - White blood cell count decreased [Recovered/Resolved]
  - Platelet count decreased [Recovered/Resolved]

NARRATIVE: CASE EVENT DATE: 20150924
